FAERS Safety Report 20613327 (Version 1)
Quarter: 2022Q1

REPORT INFORMATION
  Report Type: Spontaneous
  Country: CN (occurrence: CN)
  Receive Date: 20220318
  Receipt Date: 20220318
  Transmission Date: 20220423
  Serious: Yes (Other)
  Sender: FDA-Public Use
  Company Number: CN-BAXTER-2022BAX005892

PATIENT
  Age: 54 Year
  Sex: Female
  Weight: 63 kg

DRUGS (12)
  1. CYCLOPHOSPHAMIDE [Suspect]
     Active Substance: CYCLOPHOSPHAMIDE
     Indication: Invasive breast carcinoma
     Dosage: CYCLOPHOSPHAMIDE FOR INJECTION 800 MG + 0.9% SODIUM CHLORIDE INJECTION 250 ML
     Route: 041
     Dates: start: 20220206, end: 20220206
  2. CYCLOPHOSPHAMIDE [Suspect]
     Active Substance: CYCLOPHOSPHAMIDE
     Indication: Metastasis
     Dosage: DOSE RE-INTRODUCED.
     Route: 041
  3. SODIUM CHLORIDE [Suspect]
     Active Substance: SODIUM CHLORIDE
     Indication: Medication dilution
     Dosage: CYCLOPHOSPHAMIDE FOR INJECTION 800 MG + 0.9% SODIUM CHLORIDE INJECTION 250 ML
     Route: 041
     Dates: start: 20220206, end: 20220206
  4. SODIUM CHLORIDE [Suspect]
     Active Substance: SODIUM CHLORIDE
     Dosage: DOSE RE-INTRODUCED.
     Route: 041
  5. SODIUM CHLORIDE [Suspect]
     Active Substance: SODIUM CHLORIDE
     Dosage: PACLITAXEL FOR INJECTION (ALBUMIN BOUND) 446 MG + 0.9% SODIUM CHLORIDE INJECTION 250 ML.
     Route: 041
     Dates: start: 20220206, end: 20220206
  6. SODIUM CHLORIDE [Suspect]
     Active Substance: SODIUM CHLORIDE
     Dosage: DOSE RE-INTRODUCED.
     Route: 041
  7. DEXTROSE [Suspect]
     Active Substance: DEXTROSE
     Indication: Medication dilution
     Dosage: PIRARUBICIN HYDROCHLORIDE FOR INJECTION 80 MG + GLUCOSE INJECTION 500 ML
     Route: 041
     Dates: start: 20220206, end: 20220206
  8. DEXTROSE [Suspect]
     Active Substance: DEXTROSE
     Dosage: DOSE RE-INTRODUCED.
     Route: 041
  9. PACLITAXEL [Suspect]
     Active Substance: PACLITAXEL
     Indication: Invasive breast carcinoma
     Dosage: PACLITAXEL FOR INJECTION (ALBUMIN BOUND) 446 MG + 0.9% SODIUM CHLORIDE INJECTION 250 ML.
     Route: 041
     Dates: start: 20220206, end: 20220206
  10. PACLITAXEL [Suspect]
     Active Substance: PACLITAXEL
     Indication: Metastasis
     Dosage: DOSE RE-INTRODUCED.
     Route: 041
  11. PIRARUBICIN HYDROCHLORIDE [Suspect]
     Active Substance: PIRARUBICIN HYDROCHLORIDE
     Indication: Invasive breast carcinoma
     Dosage: PIRARUBICIN HYDROCHLORIDE FOR INJECTION 80 MG + GLUCOSE INJECTION 500 ML
     Route: 041
     Dates: start: 20220206, end: 20220206
  12. PIRARUBICIN HYDROCHLORIDE [Suspect]
     Active Substance: PIRARUBICIN HYDROCHLORIDE
     Indication: Metastasis
     Dosage: DOSE RE-INTRODUCED.
     Route: 041

REACTIONS (1)
  - Myelosuppression [Recovering/Resolving]

NARRATIVE: CASE EVENT DATE: 20220215
